FAERS Safety Report 25983450 (Version 1)
Quarter: 2025Q4

REPORT INFORMATION
  Report Type: Spontaneous
  Country: IL (occurrence: IL)
  Receive Date: 20251031
  Receipt Date: 20251031
  Transmission Date: 20260118
  Serious: Yes (Other)
  Sender: RANBAXY
  Company Number: IL-SUN PHARMACEUTICAL INDUSTRIES INC-2025R1-533310

PATIENT
  Age: 30 Year
  Sex: Female

DRUGS (1)
  1. PREDNISONE [Suspect]
     Active Substance: PREDNISONE
     Indication: Platelet count increased
     Dosage: 20 MILLIGRAM
     Route: 065

REACTIONS (3)
  - Angioedema [Unknown]
  - Sleep disorder [Unknown]
  - Abdominal distension [Unknown]
